FAERS Safety Report 4989938-4 (Version None)
Quarter: 2006Q2

REPORT INFORMATION
  Report Type: 
  Country: None (occurrence: None)
  Receive Date: 20060503
  Receipt Date: 20060407
  Transmission Date: 20061013
  Serious: Yes (Other)
  Sender: FDA-Public Use
  Company Number: FI-AMGEN-UK175577

PATIENT
  Sex: Male
  Weight: 80 kg

DRUGS (5)
  1. ARANESP [Suspect]
     Indication: ANAEMIA OF MALIGNANT DISEASE
     Route: 058
     Dates: start: 20051205, end: 20060322
  2. MELPHALAN [Concomitant]
     Route: 065
     Dates: start: 20050602, end: 20051205
  3. PREDNISONE TAB [Concomitant]
     Route: 065
     Dates: start: 20050701, end: 20051201
  4. SPESICOR [Concomitant]
     Route: 048
  5. ALLOPURINOL [Concomitant]
     Route: 065

REACTIONS (1)
  - APLASIA PURE RED CELL [None]
